FAERS Safety Report 7270372-1 (Version None)
Quarter: 2011Q1

REPORT INFORMATION
  Report Type: 
  Country: None (occurrence: None)
  Receive Date: 20110202
  Receipt Date: 20101215
  Transmission Date: 20110831
  Serious: Yes (Hospitalization, Other)
  Sender: FDA-Public Use
  Company Number: US-BAYER-201012142NA

PATIENT
  Sex: Female
  Weight: 75 kg

DRUGS (6)
  1. OCELLA [Suspect]
     Indication: CONTRACEPTION
     Dosage: UNK
     Dates: start: 20080601, end: 20090901
  2. CLARITIN [Concomitant]
     Indication: MULTIPLE ALLERGIES
     Dosage: UNK UNK, QD
     Dates: start: 20070301
  3. MORPHINE [Concomitant]
     Indication: PAIN
     Dosage: UNK
     Dates: start: 20080429
  4. YASMIN [Suspect]
     Indication: CONTRACEPTION
     Dosage: 1 DF (DAILY DOSE), QD, ORAL
     Route: 048
     Dates: start: 20060301, end: 20080601
  5. ZOSYN [Concomitant]
     Indication: CHOLANGITIS
     Dosage: UNK
     Dates: start: 20080429
  6. ZOFRAN [Concomitant]
     Indication: NAUSEA
     Dosage: UNK
     Dates: start: 20080429

REACTIONS (9)
  - CHOLELITHIASIS [None]
  - NAUSEA [None]
  - CHOLECYSTITIS CHRONIC [None]
  - BILE DUCT STONE [None]
  - VOMITING [None]
  - DEHYDRATION [None]
  - ABDOMINAL PAIN [None]
  - CHROMATURIA [None]
  - JAUNDICE CHOLESTATIC [None]
